FAERS Safety Report 9359292 (Version 2)
Quarter: 2013Q3

REPORT INFORMATION
  Report Type: Spontaneous
  Country: US (occurrence: US)
  Receive Date: 20130620
  Receipt Date: 20130904
  Transmission Date: 20140515
  Serious: Yes (Hospitalization, Other)
  Sender: FDA-Public Use
  Company Number: CHPA2013US010008

PATIENT
  Age: 56 Year
  Sex: Female

DRUGS (3)
  1. PREVACID 24HR 15MG [Suspect]
     Indication: HIATUS HERNIA
     Dosage: 15 MG, BID
     Route: 048
     Dates: start: 2009, end: 20130604
  2. PREVACID 24HR 15MG [Suspect]
     Indication: REFLUX GASTRITIS
  3. PREVACID [Concomitant]
     Indication: HIATUS HERNIA

REACTIONS (11)
  - Clostridium difficile infection [Recovering/Resolving]
  - Impaired gastric emptying [Unknown]
  - Nausea [Not Recovered/Not Resolved]
  - Diarrhoea [Recovering/Resolving]
  - Abdominal pain upper [Recovered/Resolved]
  - Decreased appetite [Recovering/Resolving]
  - Abdominal discomfort [Not Recovered/Not Resolved]
  - Drug ineffective for unapproved indication [Unknown]
  - Overdose [Unknown]
  - Treatment noncompliance [Unknown]
  - Inappropriate schedule of drug administration [Unknown]
